FAERS Safety Report 6827166-8 (Version None)
Quarter: 2010Q3

REPORT INFORMATION
  Report Type: 
  Country: None (occurrence: None)
  Receive Date: 20100709
  Receipt Date: 20100630
  Transmission Date: 20110219
  Serious: Yes (Hospitalization)
  Sender: FDA-Public Use
  Company Number: US-AMGEN-KDL421555

PATIENT
  Sex: Male

DRUGS (1)
  1. ENBREL [Suspect]
     Indication: RHEUMATOID ARTHRITIS
     Route: 058

REACTIONS (6)
  - ABDOMINAL DISCOMFORT [None]
  - CHOLELITHIASIS [None]
  - HEADACHE [None]
  - PAIN [None]
  - RASH PAPULAR [None]
  - RASH PRURITIC [None]
